FAERS Safety Report 6190955-X (Version None)
Quarter: 2009Q2

REPORT INFORMATION
  Report Type: 
  Country: None (occurrence: None)
  Receive Date: 20090513
  Receipt Date: 20090429
  Transmission Date: 20091009
  Serious: Yes (Other)
  Sender: FDA-Public Use
  Company Number: UKP09000092

PATIENT
  Sex: Female
  Weight: 75 kg

DRUGS (3)
  1. ASACOL [Suspect]
     Indication: COLITIS
     Dosage: 400 MG, 3 /DAY, ORAL
     Route: 048
     Dates: start: 20081124, end: 20090213
  2. ASACOL [Suspect]
     Indication: PROCTITIS
     Dosage: 400 MG, 3 /DAY, ORAL
     Route: 048
     Dates: start: 20081124, end: 20090213
  3. YASMIN (DROSPIRENONE, ETHINYLESTRADIOL) UNKNOWN [Concomitant]

REACTIONS (1)
  - ERYTHEMA NODOSUM [None]
